FAERS Safety Report 25702484 (Version 1)
Quarter: 2025Q3

REPORT INFORMATION
  Report Type: Spontaneous
  Country: US (occurrence: US)
  Receive Date: 20250819
  Receipt Date: 20250819
  Transmission Date: 20251020
  Serious: No
  Sender: CSL BEHRING
  Company Number: US-BEH-2025216203

PATIENT
  Age: 2 Year
  Sex: Female

DRUGS (2)
  1. HIZENTRA [Suspect]
     Active Substance: HUMAN IMMUNOGLOBULIN G
     Indication: Bruton^s agammaglobulinaemia
     Dosage: 3 MG, QW
     Route: 058
  2. HIZENTRA [Suspect]
     Active Substance: HUMAN IMMUNOGLOBULIN G
     Indication: Bruton^s agammaglobulinaemia
     Dosage: 3 MG, QW
     Route: 058

REACTIONS (3)
  - Joint effusion [Recovered/Resolved]
  - Joint effusion [Recovered/Resolved]
  - Joint swelling [Unknown]

NARRATIVE: CASE EVENT DATE: 20250529
